FAERS Safety Report 4310946-0 (Version None)
Quarter: 2004Q1

REPORT INFORMATION
  Report Type: 
  Country: None (occurrence: None)
  Receive Date: 20040302
  Receipt Date: 20040218
  Transmission Date: 20041129
  Serious: Yes (Hospitalization)
  Sender: FDA-Public Use
  Company Number: S04-NOR-00786-01

PATIENT
  Age: 33 Year
  Sex: Female

DRUGS (1)
  1. ESCITALOPRAM OXALATE [Suspect]
     Indication: SUICIDE ATTEMPT
     Dosage: 240 TABLET ONCE PO
     Route: 048
     Dates: start: 20031213, end: 20031213

REACTIONS (4)
  - DRUG TOXICITY [None]
  - ELECTROCARDIOGRAM QT PROLONGED [None]
  - INTENTIONAL OVERDOSE [None]
  - VOMITING [None]
